APPROVED DRUG PRODUCT: IMODIUM MULTI-SYMPTOM RELIEF
Active Ingredient: LOPERAMIDE HYDROCHLORIDE; SIMETHICONE
Strength: 2MG;125MG
Dosage Form/Route: TABLET;ORAL
Application: N021140 | Product #001
Applicant: KENVUE BRANDS LLC
Approved: Nov 30, 2000 | RLD: Yes | RS: Yes | Type: OTC